FAERS Safety Report 6402231-8 (Version None)
Quarter: 2009Q4

REPORT INFORMATION
  Report Type: 
  Country: None (occurrence: None)
  Receive Date: 20091015
  Receipt Date: 20091002
  Transmission Date: 20100525
  Serious: Yes (Other)
  Sender: FDA-Public Use
  Company Number: PHEH2009US12938

PATIENT
  Sex: Female

DRUGS (2)
  1. TASIGNA [Suspect]
     Dosage: 400 UNK, BID
     Route: 048
  2. ANTIVIRALS NOS [Concomitant]
     Indication: HIV INFECTION

REACTIONS (3)
  - CHRONIC MYELOID LEUKAEMIA [None]
  - HAEMORRHAGE [None]
  - NEUTROPENIA [None]
